FAERS Safety Report 5783153-2 (Version None)
Quarter: 2008Q2

REPORT INFORMATION
  Report Type: 
  Country: None (occurrence: None)
  Receive Date: 20080624
  Receipt Date: 20080619
  Transmission Date: 20081010
  Serious: Yes (Hospitalization)
  Sender: FDA-Public Use
  Company Number: FR-ASTRAZENECA-2008CG00961

PATIENT
  Age: 31 Year
  Sex: Male

DRUGS (18)
  1. OMEPRAZOLE [Suspect]
     Route: 048
  2. PROGRAF [Suspect]
  3. CORTANCYL [Suspect]
  4. FLAGYL [Suspect]
  5. ZITHROMAX [Suspect]
  6. BACTRIM [Suspect]
  7. ACTONEL [Suspect]
  8. PAROXETINE HCL [Suspect]
  9. CELLCEPT [Concomitant]
  10. CERTICAN [Concomitant]
  11. SINGULAIR [Concomitant]
  12. IDEOS [Concomitant]
  13. CREON [Concomitant]
  14. TOCO [Concomitant]
  15. MOTILIUM [Concomitant]
  16. FENOFIBRATE [Concomitant]
  17. INSULATARD [Concomitant]
  18. NOVORAPID [Concomitant]

REACTIONS (2)
  - SCOTOMA [None]
  - VISUAL ACUITY REDUCED [None]
